FAERS Safety Report 22058766 (Version 1)
Quarter: 2023Q1

REPORT INFORMATION
  Report Type: Spontaneous
  Country: CZ (occurrence: None)
  Receive Date: 20230303
  Receipt Date: 20230303
  Transmission Date: 20230418
  Serious: Yes (Death, Life-Threatening, Hospitalization, Disabling, Other)
  Sender: FDA-Public Use
  Company Number: 2023A049933

PATIENT
  Age: 78 Year
  Sex: Female
  Weight: 68 kg

DRUGS (10)
  1. ROSUVASTATIN CALCIUM [Suspect]
     Active Substance: ROSUVASTATIN CALCIUM
     Dosage: 1-0-0
  2. TICAGRELOR [Suspect]
     Active Substance: TICAGRELOR
     Dosage: 1-0-1
  3. CALCICHEW D3 LEMON [Concomitant]
     Dosage: 1-0-0
  4. URSODIOL [Concomitant]
     Active Substance: URSODIOL
     Dosage: 0-0-2
  5. ASPIRIN [Concomitant]
     Active Substance: ASPIRIN
     Dosage: 1X DENN?
  6. TEZEFORT [Concomitant]
     Dosage: 1-0-0
  7. SPIRONOLACTONE [Concomitant]
     Active Substance: SPIRONOLACTONE
     Dosage: 1-0-0
  8. FUROSEMIDE [Concomitant]
     Active Substance: FUROSEMIDE
     Dosage: 1/2-0-0
  9. CONTROLOC [Concomitant]
     Active Substance: PANTOPRAZOLE SODIUM
     Dosage: 1-0-0
  10. METOPROLOL SUCCINATE [Concomitant]
     Active Substance: METOPROLOL SUCCINATE
     Dosage: 1-0-0

REACTIONS (1)
  - Renal failure [Fatal]

NARRATIVE: CASE EVENT DATE: 20221227
